FAERS Safety Report 21075790 (Version 1)
Quarter: 2022Q3

REPORT INFORMATION
  Report Type: Spontaneous
  Country: US (occurrence: None)
  Receive Date: 20220712
  Receipt Date: 20220712
  Transmission Date: 20221026
  Serious: No
  Sender: FDA-Public Use
  Company Number: None

PATIENT
  Age: 36 Year
  Sex: Female
  Weight: 103.5 kg

DRUGS (5)
  1. NURTEC ODT [Suspect]
     Active Substance: RIMEGEPANT SULFATE
     Indication: Migraine
     Dosage: FREQUENCY : AS NEEDED;?
     Route: 060
     Dates: start: 20220701, end: 20220706
  2. Imperative [Concomitant]
  3. lo lo fe birth control [Concomitant]
  4. B2 [Concomitant]
  5. MAGNESIUM [Concomitant]
     Active Substance: MAGNESIUM

REACTIONS (7)
  - Arthralgia [None]
  - Joint swelling [None]
  - Myalgia [None]
  - Muscle swelling [None]
  - Pain [None]
  - Diarrhoea [None]
  - Abdominal pain [None]
